FAERS Safety Report 8165715-0 (Version None)
Quarter: 2012Q1

REPORT INFORMATION
  Report Type: 
  Country: None (occurrence: None)
  Receive Date: 20120227
  Receipt Date: 20110106
  Transmission Date: 20120608
  Serious: No
  Sender: FDA-Public Use
  Company Number: US-MYLANLABS-2011S1000293

PATIENT
  Age: 18 Year
  Sex: Male

DRUGS (4)
  1. M.V.I. [Concomitant]
  2. AMNESTEEM [Suspect]
     Indication: ACNE
     Dates: start: 20101101, end: 20101201
  3. AMNESTEEM [Suspect]
     Route: 048
     Dates: start: 20101201, end: 20101223
  4. AMNESTEEM [Suspect]
     Route: 048
     Dates: start: 20101201, end: 20101223

REACTIONS (3)
  - DEPRESSION [None]
  - DRY SKIN [None]
  - LIP DRY [None]
